FAERS Safety Report 19374710 (Version 3)
Quarter: 2021Q2

REPORT INFORMATION
  Report Type: Spontaneous
  Country: SK (occurrence: SK)
  Receive Date: 20210604
  Receipt Date: 20210625
  Transmission Date: 20210717
  Serious: Yes (Death, Other)
  Sender: FDA-Public Use
  Company Number: SK-REGENERON PHARMACEUTICALS, INC.-2021-56047

PATIENT

DRUGS (12)
  1. PRALUENT [Suspect]
     Active Substance: ALIROCUMAB
     Indication: HYPOLIPIDAEMIA
     Dosage: UNK
     Route: 065
     Dates: start: 2018
  2. ATORVASTATIN [Concomitant]
     Active Substance: ATORVASTATIN
     Indication: PRODUCT USED FOR UNKNOWN INDICATION
     Dosage: UNK
     Route: 065
  3. OMEPRAZOLE. [Concomitant]
     Active Substance: OMEPRAZOLE
     Indication: PRODUCT USED FOR UNKNOWN INDICATION
     Dosage: UNK
     Route: 065
  4. PENTOXIFYLLINE. [Concomitant]
     Active Substance: PENTOXIFYLLINE
     Indication: PRODUCT USED FOR UNKNOWN INDICATION
     Dosage: UNK
     Route: 065
  5. EZETIMIBE. [Concomitant]
     Active Substance: EZETIMIBE
     Indication: PRODUCT USED FOR UNKNOWN INDICATION
     Dosage: UNK
     Route: 065
  6. URAPIDIL [Concomitant]
     Active Substance: URAPIDIL
     Indication: PRODUCT USED FOR UNKNOWN INDICATION
     Dosage: UNK
     Route: 065
  7. METFORMIN [Concomitant]
     Active Substance: METFORMIN HYDROCHLORIDE
     Indication: PRODUCT USED FOR UNKNOWN INDICATION
     Dosage: UNK
     Route: 065
  8. NAFTIDROFURYL  [NAFTIDROFURYL OXALATE] [Concomitant]
     Indication: PRODUCT USED FOR UNKNOWN INDICATION
     Dosage: UNK
     Route: 065
  9. FUROSEMIDE. [Concomitant]
     Active Substance: FUROSEMIDE
     Indication: PRODUCT USED FOR UNKNOWN INDICATION
     Dosage: UNK
     Route: 065
  10. RUTOSIDE [Concomitant]
     Active Substance: RUTIN
     Indication: PRODUCT USED FOR UNKNOWN INDICATION
     Dosage: UNK
     Route: 065
  11. PIRACETAM [Concomitant]
     Active Substance: PIRACETAM
     Indication: PRODUCT USED FOR UNKNOWN INDICATION
     Dosage: UNK
     Route: 065
  12. THEOPHYLLINE [Concomitant]
     Active Substance: THEOPHYLLINE ANHYDROUS
     Indication: PRODUCT USED FOR UNKNOWN INDICATION
     Dosage: UNK
     Route: 065

REACTIONS (7)
  - Restenosis [Unknown]
  - Cardiac failure [Unknown]
  - Vascular encephalopathy [Unknown]
  - Aortic stenosis [Fatal]
  - Dyspepsia [Unknown]
  - Weight decreased [Unknown]
  - Transcatheter aortic valve implantation [Unknown]

NARRATIVE: CASE EVENT DATE: 2018
